FAERS Safety Report 8382717-X (Version None)
Quarter: 2012Q2

REPORT INFORMATION
  Report Type: 
  Country: None (occurrence: None)
  Receive Date: 20120524
  Receipt Date: 20120425
  Transmission Date: 20120825
  Serious: No
  Sender: FDA-Public Use
  Company Number: US-ALLERGAN-1204076US

PATIENT
  Age: 50 Year
  Sex: Female
  Weight: 64.399 kg

DRUGS (2)
  1. ALLEGRA [Concomitant]
     Indication: HYPERSENSITIVITY
     Dosage: 180 MG, QD, PRN
     Route: 048
  2. LASTACAFT [Suspect]
     Indication: CONJUNCTIVITIS ALLERGIC
     Dosage: 1 GTT, QD, PRN
     Route: 047
     Dates: start: 20110301, end: 20110701

REACTIONS (3)
  - HYPERSENSITIVITY [None]
  - CONJUNCTIVITIS BACTERIAL [None]
  - EYE PRURITUS [None]
